FAERS Safety Report 4979749-8 (Version None)
Quarter: 2006Q2

REPORT INFORMATION
  Report Type: 
  Country: None (occurrence: None)
  Receive Date: 20060418
  Receipt Date: 20060405
  Transmission Date: 20061013
  Serious: Yes (Other)
  Sender: FDA-Public Use
  Company Number: 2006047986

PATIENT
  Age: 17 Year
  Sex: Male

DRUGS (2)
  1. PHENYTOIN SODIUM [Suspect]
     Indication: EPILEPSY
     Dosage: ORAL
     Route: 048
  2. HIDANTAL (PHENYTOIN) [Suspect]
     Indication: EPILEPSY
     Dates: start: 20040101

REACTIONS (2)
  - CONVULSION [None]
  - PHARMACEUTICAL PRODUCT COMPLAINT [None]
